APPROVED DRUG PRODUCT: PHENELZINE SULFATE
Active Ingredient: PHENELZINE SULFATE
Strength: EQ 15MG BASE
Dosage Form/Route: TABLET;ORAL
Application: A200181 | Product #001 | TE Code: AB
Applicant: NOVEL LABORATORIES INC
Approved: Dec 8, 2010 | RLD: No | RS: No | Type: RX